FAERS Safety Report 4517018-0 (Version None)
Quarter: 2004Q4

REPORT INFORMATION
  Report Type: 
  Country: None (occurrence: None)
  Receive Date: 20041202
  Receipt Date: 20041123
  Transmission Date: 20050328
  Serious: Yes (Other)
  Sender: FDA-Public Use
  Company Number: PHBS2004BR15790

PATIENT
  Age: 41 Year
  Sex: Male

DRUGS (2)
  1. HALOPERIDOL [Concomitant]
     Indication: SCHIZOPHRENIA
     Dosage: 10 MG/D
     Route: 048
  2. LEPONEX [Suspect]
     Indication: SCHIZOPHRENIA
     Dosage: 400 MG/D
     Route: 048
     Dates: start: 19980101

REACTIONS (2)
  - BUNDLE BRANCH BLOCK [None]
  - ELECTROCARDIOGRAM REPOLARISATION ABNORMALITY [None]
